FAERS Safety Report 6754570-9 (Version None)
Quarter: 2010Q2

REPORT INFORMATION
  Report Type: 
  Country: None (occurrence: None)
  Receive Date: 20100601
  Receipt Date: 20100524
  Transmission Date: 20101027
  Serious: Yes (Other)
  Sender: FDA-Public Use
  Company Number: 2010SP028707

PATIENT
  Age: 33 Year
  Sex: Female
  Weight: 90.7194 kg

DRUGS (3)
  1. NUVARING [Suspect]
     Indication: DRUG USE FOR UNKNOWN INDICATION
     Dosage: 1 DF;
  2. LAMICTAL [Concomitant]
  3. CELEXA [Concomitant]

REACTIONS (6)
  - BREAST PAIN [None]
  - DRUG INTERACTION [None]
  - HEADACHE [None]
  - HOT FLUSH [None]
  - METRORRHAGIA [None]
  - MOOD SWINGS [None]
